FAERS Safety Report 5781358-8 (Version None)
Quarter: 2008Q2

REPORT INFORMATION
  Report Type: 
  Country: None (occurrence: None)
  Receive Date: 20080623
  Receipt Date: 20080619
  Transmission Date: 20081010
  Serious: Yes (Death, Hospitalization)
  Sender: FDA-Public Use
  Company Number: US-BRISTOL-MYERS SQUIBB COMPANY-14203574

PATIENT
  Age: 79 Year
  Sex: Female

DRUGS (8)
  1. COUMADIN [Suspect]
     Indication: ATRIAL FIBRILLATION
     Dosage: 1 DOSAGE FORM = 1 MG 2DAYS IN A WEEK 2 MG OTHER DAYS OF THE WEEK.
     Route: 048
  2. COUMADIN [Suspect]
     Indication: THROMBOSIS
     Dosage: 1 DOSAGE FORM = 1 MG 2DAYS IN A WEEK 2 MG OTHER DAYS OF THE WEEK.
     Route: 048
  3. PLAVIX [Suspect]
     Indication: ATRIAL FIBRILLATION
     Route: 048
     Dates: start: 20080421
  4. PLAVIX [Suspect]
     Indication: THROMBOSIS
     Route: 048
     Dates: start: 20080421
  5. PLAVIX [Suspect]
     Indication: CORONARY ARTERY DISEASE
     Route: 048
     Dates: start: 20080421
  6. PLAVIX [Suspect]
     Indication: CORONARY ARTERY THROMBOSIS
     Route: 048
     Dates: start: 20080421
  7. ASPIRIN [Suspect]
     Indication: ATRIAL FIBRILLATION
     Route: 048
     Dates: end: 20080501
  8. ASPIRIN [Suspect]
     Indication: THROMBOSIS
     Route: 048
     Dates: end: 20080501

REACTIONS (3)
  - CEREBROVASCULAR ACCIDENT [None]
  - HAEMATOCRIT DECREASED [None]
  - HAEMORRHAGE [None]
